FAERS Safety Report 16196790 (Version 1)
Quarter: 2019Q2

REPORT INFORMATION
  Report Type: Spontaneous
  Country: US (occurrence: US)
  Receive Date: 20190412
  Receipt Date: 20190412
  Transmission Date: 20190711
  Serious: Yes (Life-Threatening, Hospitalization)
  Sender: FDA-Public Use
  Company Number: None

PATIENT
  Age: 81 Year
  Sex: Male
  Weight: 61.1 kg

DRUGS (18)
  1. CHOLECACIFEROL [Concomitant]
     Dates: start: 20140617
  2. LISINOPRIL. [Concomitant]
     Active Substance: LISINOPRIL
  3. LORAZEPAM. [Concomitant]
     Active Substance: LORAZEPAM
     Dates: start: 20130712
  4. OMEPRAZOLE. [Concomitant]
     Active Substance: OMEPRAZOLE
     Dates: start: 20160922
  5. TRAZODONE [Concomitant]
     Active Substance: TRAZODONE HYDROCHLORIDE
  6. RANITIDINE. [Concomitant]
     Active Substance: RANITIDINE
  7. ATORVASTATIN [Concomitant]
     Active Substance: ATORVASTATIN
     Dates: start: 20140617
  8. HYDROCHLORATHIAZIDE [Concomitant]
     Active Substance: HYDROCHLOROTHIAZIDE
     Dates: start: 20140617
  9. SERTRALINE [Concomitant]
     Active Substance: SERTRALINE HYDROCHLORIDE
  10. IBRUTINIB [Suspect]
     Active Substance: IBRUTINIB
     Indication: CHRONIC LYMPHOCYTIC LEUKAEMIA
     Route: 048
     Dates: start: 20190309, end: 20190402
  11. ALBUTEROL. [Concomitant]
     Active Substance: ALBUTEROL
     Dates: start: 20160922
  12. AMLODIPINE [Concomitant]
     Active Substance: AMLODIPINE BESYLATE
     Dates: start: 20140617
  13. FLUTICASONE. [Concomitant]
     Active Substance: FLUTICASONE
     Dates: start: 20160922
  14. MULTI VITAMIN [Concomitant]
     Active Substance: VITAMINS
     Dates: start: 20170617
  15. OMEGA 3 [Concomitant]
     Active Substance: OMEGA-3 FATTY ACIDS
  16. ACETAMINOPHEN-HYDROCODONE [Concomitant]
     Active Substance: ACETAMINOPHEN\HYDROCODONE
     Dates: start: 20140617
  17. MUPIROCIN. [Concomitant]
     Active Substance: MUPIROCIN
     Dates: start: 20171107
  18. PRAZOSIN. [Concomitant]
     Active Substance: PRAZOSIN
     Dates: start: 20160922

REACTIONS (5)
  - Parotitis [None]
  - Pain [None]
  - Swelling [None]
  - Oxygen saturation decreased [None]
  - Confusional state [None]

NARRATIVE: CASE EVENT DATE: 20190402
